FAERS Safety Report 6031948-2 (Version None)
Quarter: 2009Q1

REPORT INFORMATION
  Report Type: 
  Country: None (occurrence: None)
  Receive Date: 20090108
  Receipt Date: 20090105
  Transmission Date: 20090719
  Serious: Yes (Hospitalization)
  Sender: FDA-Public Use
  Company Number: US-SANOFI-SYNTHELABO-A03200900027

PATIENT
  Sex: Female

DRUGS (4)
  1. PHENOBARB [Concomitant]
     Indication: CONVULSION
     Route: 065
     Dates: start: 20080101
  2. DIAMOX [Concomitant]
     Indication: CONVULSION
     Dosage: UNK
     Route: 065
  3. SYNTHROID [Concomitant]
     Indication: THYROID DISORDER
     Dosage: UNK
     Route: 065
  4. PLAVIX [Suspect]
     Indication: CORONARY ARTERIAL STENT INSERTION
     Route: 048
     Dates: start: 20070201

REACTIONS (6)
  - BLOOD PRESSURE INCREASED [None]
  - CHEST PAIN [None]
  - DIZZINESS [None]
  - DRY EYE [None]
  - NAUSEA [None]
  - PULMONARY EMBOLISM [None]
